FAERS Safety Report 10144373 (Version 2)
Quarter: 2014Q2

REPORT INFORMATION
  Report Type: Report from Study
  Country: BR (occurrence: BR)
  Receive Date: 20140430
  Receipt Date: 20140430
  Transmission Date: 20141212
  Serious: Yes (Other)
  Sender: FDA-Public Use
  Company Number: BR-ABBVIE-14P-020-1218771-00

PATIENT
  Age: 63 Year
  Sex: Female
  Weight: 55 kg

DRUGS (7)
  1. HUMIRA [Suspect]
     Indication: RHEUMATOID ARTHRITIS
     Route: 058
  2. UNKNOWN MEDICATIONS [Concomitant]
     Indication: PRODUCT USED FOR UNKNOWN INDICATION
  3. METHOTREXATE [Concomitant]
     Indication: RHEUMATOID ARTHRITIS
  4. PREDNISONE [Concomitant]
     Indication: RHEUMATOID ARTHRITIS
  5. GLIFAGE [Concomitant]
     Indication: DIABETES MELLITUS
  6. CARDIZEM [Concomitant]
     Indication: HYPERTENSION
  7. PRESSAT [Concomitant]
     Indication: HYPERTENSION

REACTIONS (12)
  - Intestinal perforation [Unknown]
  - Diverticulitis [Not Recovered/Not Resolved]
  - Urinary tract infection [Recovered/Resolved]
  - Nephrolithiasis [Recovered/Resolved]
  - Joint swelling [Not Recovered/Not Resolved]
  - Abdominal pain [Unknown]
  - Arthritis [Unknown]
  - Gastrointestinal pain [Unknown]
  - Abdominal pain [Unknown]
  - Gastrointestinal disorder [Unknown]
  - Kidney infection [Recovered/Resolved]
  - Diverticulitis [Unknown]
